FAERS Safety Report 21343527 (Version 1)
Quarter: 2022Q3

REPORT INFORMATION
  Report Type: Spontaneous
  Country: US (occurrence: US)
  Receive Date: 20220916
  Receipt Date: 20220916
  Transmission Date: 20221027
  Serious: Yes (Life-Threatening, Hospitalization)
  Sender: FDA-Public Use
  Company Number: US-STRIDES ARCOLAB LIMITED-2022SP008866

PATIENT
  Sex: Male
  Weight: 3.1 kg

DRUGS (4)
  1. FUROSEMIDE [Suspect]
     Active Substance: FUROSEMIDE
     Indication: Ascites
     Dosage: UNK
     Route: 065
  2. SPIRONOLACTONE [Suspect]
     Active Substance: SPIRONOLACTONE
     Indication: Ascites
     Dosage: UNK
     Route: 065
  3. LEVOTHYROXINE [Concomitant]
     Active Substance: LEVOTHYROXINE
     Indication: Congenital hypothyroidism
     Dosage: UNK
     Route: 065
  4. PIPERACILLIN SODIUM\TAZOBACTAM SODIUM [Concomitant]
     Active Substance: PIPERACILLIN SODIUM\TAZOBACTAM SODIUM
     Indication: Bacterial infection
     Dosage: UNK
     Route: 065

REACTIONS (1)
  - Drug ineffective [Unknown]
